FAERS Safety Report 7571721-7 (Version None)
Quarter: 2011Q2

REPORT INFORMATION
  Report Type: 
  Country: None (occurrence: None)
  Receive Date: 20110624
  Receipt Date: 20110620
  Transmission Date: 20111010
  Serious: Yes (Death, Hospitalization)
  Sender: FDA-Public Use
  Company Number: PL-CELGENEUS-129-CCAZA-11062314

PATIENT
  Sex: Female

DRUGS (1)
  1. AZACITIDINE [Suspect]
     Route: 058
     Dates: start: 20110527, end: 20110602

REACTIONS (1)
  - PNEUMONIA [None]
